FAERS Safety Report 10789062 (Version 1)
Quarter: 2015Q1

REPORT INFORMATION
  Report Type: Spontaneous
  Country: FR (occurrence: FR)
  Receive Date: 20150212
  Receipt Date: 20150212
  Transmission Date: 20150721
  Serious: Yes (Hospitalization)
  Sender: FDA-Public Use
  Company Number: FR-ASTRAZENECA-2015SE11802

PATIENT
  Age: 12827 Day
  Sex: Male

DRUGS (2)
  1. XEROQUEL [Suspect]
     Active Substance: QUETIAPINE FUMARATE
     Route: 048
     Dates: start: 20150103, end: 20150103
  2. XANAX [Suspect]
     Active Substance: ALPRAZOLAM
     Dosage: ONE BLISTER ONCE
     Route: 048
     Dates: start: 20150103, end: 20150103

REACTIONS (4)
  - Miosis [Recovered/Resolved]
  - Tremor [Unknown]
  - Toxicity to various agents [Recovered/Resolved]
  - Tachycardia [Recovered/Resolved]

NARRATIVE: CASE EVENT DATE: 20150103
